FAERS Safety Report 10423793 (Version 1)
Quarter: 2014Q3

REPORT INFORMATION
  Report Type: Spontaneous
  Country: US (occurrence: None)
  Receive Date: 20140722
  Receipt Date: 20140722
  Transmission Date: 20150326
  Serious: No
  Sender: FDA-Public Use
  Company Number: 163-10004-14061746

PATIENT
  Age: 65 Year
  Sex: Female
  Weight: 86.18 kg

DRUGS (5)
  1. OTEZLA [Suspect]
     Active Substance: APREMILAST
     Indication: PSORIATIC ARTHROPATHY
     Route: 048
     Dates: start: 20140525
  2. LAMICTAL [Concomitant]
     Active Substance: LAMOTRIGINE
  3. LOVASTATIN (LOVASTATIN) [Concomitant]
     Active Substance: LOVASTATIN
  4. PROZAC [Concomitant]
     Active Substance: FLUOXETINE HYDROCHLORIDE
  5. ABILIFY (ARIPRIPRAZOLE) [Concomitant]

REACTIONS (5)
  - Vomiting [None]
  - Headache [None]
  - Nausea [None]
  - Diarrhoea [None]
  - Malaise [None]

NARRATIVE: CASE EVENT DATE: 20140607
